FAERS Safety Report 23866289 (Version 1)
Quarter: 2024Q2

REPORT INFORMATION
  Report Type: Spontaneous
  Country: CA (occurrence: CA)
  Receive Date: 20240517
  Receipt Date: 20240517
  Transmission Date: 20240716
  Serious: Yes (Other)
  Sender: FDA-Public Use
  Company Number: CA-VIIV HEALTHCARE LIMITED-CA2022197678

PATIENT
  Age: 51 Year
  Sex: Male

DRUGS (4)
  1. RILPIVIRINE [Suspect]
     Active Substance: RILPIVIRINE
     Indication: HIV infection
     Dosage: UNK UNK, Q2M (600MG/3ML, RILPIVIRINE 900 MG/3ML
     Route: 030
     Dates: start: 20220401
  2. RILPIVIRINE [Suspect]
     Active Substance: RILPIVIRINE
     Dosage: UNK UNK, Q2M CABOTEGRAVIR + RILPIVIRINE
     Route: 030
  3. CABOTEGRAVIR [Suspect]
     Active Substance: CABOTEGRAVIR
     Indication: HIV infection
     Dosage: UNK UNK, Q2M (600MG/3ML, RILPIVIRINE 900 MG/3ML
     Route: 030
     Dates: start: 20220401
  4. CABOTEGRAVIR [Suspect]
     Active Substance: CABOTEGRAVIR
     Dosage: UNK UNK, Q2M CABOTEGRAVIR + RILPIVIRINE
     Route: 030

REACTIONS (7)
  - Nephrolithiasis [Unknown]
  - Pain in extremity [Unknown]
  - Burning sensation [Recovered/Resolved]
  - Dizziness [Unknown]
  - Helicobacter infection [Unknown]
  - Haematuria [Unknown]
  - Renal pain [Unknown]

NARRATIVE: CASE EVENT DATE: 20221228
